FAERS Safety Report 23441086 (Version 1)
Quarter: 2024Q1

REPORT INFORMATION
  Report Type: Spontaneous
  Country: JP (occurrence: JP)
  Receive Date: 20240125
  Receipt Date: 20240125
  Transmission Date: 20240410
  Serious: Yes (Hospitalization, Other)
  Sender: FDA-Public Use
  Company Number: JP-SUN PHARMACEUTICAL INDUSTRIES LTD-2024RR-428228

PATIENT
  Age: 75 Year
  Sex: Male
  Weight: 53.5 kg

DRUGS (5)
  1. BICALUTAMIDE [Suspect]
     Active Substance: BICALUTAMIDE
     Indication: Prostate cancer
     Dosage: UNK
     Route: 065
  2. CLARITHROMYCIN [Interacting]
     Active Substance: CLARITHROMYCIN
     Indication: Osteonecrosis of jaw
     Dosage: 400 MILLIGRAM, DAILY
     Route: 065
  3. DOCETAXEL [Suspect]
     Active Substance: DOCETAXEL\DOCETAXEL ANHYDROUS
     Indication: Prostate cancer
     Dosage: UNK
     Route: 065
  4. ABIRATERONE [Suspect]
     Active Substance: ABIRATERONE
     Indication: Prostate cancer
     Dosage: UNK
     Route: 065
  5. CABAZITAXEL [Interacting]
     Active Substance: CABAZITAXEL
     Indication: Product used for unknown indication
     Dosage: 22.5 MILLIGRAM/SQ. METER, 1 DOSE/3 WEEKS
     Route: 040

REACTIONS (6)
  - Drug interaction [Unknown]
  - Condition aggravated [Unknown]
  - Dysphagia [Unknown]
  - Pancytopenia [Unknown]
  - Drug ineffective [Unknown]
  - Disease recurrence [Unknown]
